FAERS Safety Report 7232035-8 (Version None)
Quarter: 2011Q1

REPORT INFORMATION
  Report Type: 
  Country: None (occurrence: None)
  Receive Date: 20110118
  Receipt Date: 20061205
  Transmission Date: 20110831
  Serious: Yes (Other)
  Sender: FDA-Public Use
  Company Number: PHHY2006MX02742

PATIENT
  Age: 52 Year
  Sex: Female

DRUGS (1)
  1. TEGRETOL [Suspect]
     Indication: NEURALGIA
     Dosage: 1 DF, QD
     Route: 048
     Dates: start: 20060801, end: 20061101

REACTIONS (4)
  - DIARRHOEA [None]
  - HEADACHE [None]
  - VOMITING [None]
  - TYPHOID FEVER [None]
